FAERS Safety Report 14108419 (Version 2)
Quarter: 2018Q1

REPORT INFORMATION
  Report Type: Report from Study
  Country: CA (occurrence: CA)
  Receive Date: 20171019
  Receipt Date: 20180119
  Transmission Date: 20180508
  Serious: Yes (Other)
  Sender: FDA-Public Use
  Company Number: CA-JNJFOC-20170930927

PATIENT
  Age: 75 Year
  Sex: Female

DRUGS (9)
  1. IMBRUVICA [Suspect]
     Active Substance: IBRUTINIB
     Indication: CHRONIC LYMPHOCYTIC LEUKAEMIA
     Dosage: STRENGTH = 140 MG
     Route: 048
     Dates: start: 20170914
  2. RAMIPRIL. [Concomitant]
     Active Substance: RAMIPRIL
  3. PREVACID [Concomitant]
     Active Substance: LANSOPRAZOLE
  4. JANUVIA [Concomitant]
     Active Substance: SITAGLIPTIN PHOSPHATE
  5. KEFLEX [Concomitant]
     Active Substance: CEPHALEXIN
     Indication: SINUSITIS
     Dates: start: 20170928
  6. CRESTOR [Concomitant]
     Active Substance: ROSUVASTATIN CALCIUM
  7. KEFLEX [Concomitant]
     Active Substance: CEPHALEXIN
     Indication: CONJUNCTIVITIS
     Dates: start: 20170928
  8. OMNARIS [Concomitant]
     Active Substance: CICLESONIDE
     Indication: CONJUNCTIVITIS
     Dates: start: 20170928
  9. OMNARIS [Concomitant]
     Active Substance: CICLESONIDE
     Indication: SINUSITIS
     Dates: start: 20170928

REACTIONS (7)
  - Rash [Recovering/Resolving]
  - Conjunctivitis [Recovering/Resolving]
  - Nasopharyngitis [Unknown]
  - Lower limb fracture [Recovering/Resolving]
  - Sinusitis [Recovering/Resolving]
  - Blood pressure increased [Recovering/Resolving]
  - Joint swelling [Recovering/Resolving]

NARRATIVE: CASE EVENT DATE: 20170921
